FAERS Safety Report 6327152-0 (Version None)
Quarter: 2009Q3

REPORT INFORMATION
  Report Type: 
  Country: None (occurrence: None)
  Receive Date: 20090825
  Receipt Date: 20090819
  Transmission Date: 20100115
  Serious: Yes (Hospitalization)
  Sender: FDA-Public Use
  Company Number: B0566078A

PATIENT
  Sex: Female

DRUGS (18)
  1. AUGMENTIN '125' [Suspect]
     Indication: DRUG USE FOR UNKNOWN INDICATION
     Route: 048
     Dates: start: 20090123, end: 20090202
  2. KEPPRA [Suspect]
     Indication: DRUG USE FOR UNKNOWN INDICATION
     Dosage: 1UNIT TWICE PER DAY
     Route: 048
     Dates: start: 20090127, end: 20090210
  3. INIPOMP [Suspect]
     Indication: DRUG USE FOR UNKNOWN INDICATION
     Dosage: 20MG PER DAY
     Route: 048
     Dates: start: 20090123, end: 20090205
  4. FLUDEX LP [Suspect]
     Indication: DRUG USE FOR UNKNOWN INDICATION
     Dosage: 1.5MG PER DAY
     Route: 048
     Dates: start: 20090126, end: 20090205
  5. DIAMICRON [Suspect]
     Indication: DRUG USE FOR UNKNOWN INDICATION
     Dosage: 30MG PER DAY
     Route: 048
     Dates: start: 20090127, end: 20090205
  6. GLUCOPHAGE [Suspect]
     Indication: DRUG USE FOR UNKNOWN INDICATION
     Dosage: 1UNIT TWICE PER DAY
     Route: 048
     Dates: start: 20090203
  7. LOXEN LP [Suspect]
     Indication: DRUG USE FOR UNKNOWN INDICATION
     Dosage: 50MG TWICE PER DAY
     Route: 065
     Dates: start: 20090127
  8. COAPROVEL [Concomitant]
     Route: 065
  9. HYPERIUM [Concomitant]
     Route: 065
  10. ZANIDIP [Concomitant]
     Route: 065
  11. INSULATARD [Concomitant]
     Dosage: 100IUML UNKNOWN
     Route: 065
  12. DIASTABOL [Concomitant]
     Route: 065
  13. LEVOTHYROX [Concomitant]
     Indication: HYPOTHYROIDISM
     Dosage: 100MCG PER DAY
     Route: 065
  14. SINTROM [Concomitant]
     Route: 065
  15. ALLOPURINOL [Concomitant]
     Route: 065
  16. LESCOL [Concomitant]
     Dosage: 80MG UNKNOWN
     Route: 065
  17. COVERSYL [Concomitant]
     Route: 065
     Dates: start: 20090126
  18. URBANYL [Concomitant]
     Dosage: 1TAB UNKNOWN
     Route: 065
     Dates: start: 20090127

REACTIONS (1)
  - THROMBOCYTOPENIA [None]
